FAERS Safety Report 5869076-9 (Version None)
Quarter: 2008Q3

REPORT INFORMATION
  Report Type: 
  Country: None (occurrence: None)
  Receive Date: 20080903
  Receipt Date: 20080827
  Transmission Date: 20090109
  Serious: Yes (Hospitalization)
  Sender: FDA-Public Use
  Company Number: FR-AVENTIS-200813171FR

PATIENT
  Age: 79 Year
  Sex: Male

DRUGS (7)
  1. TAVANIC [Suspect]
     Indication: INFECTION
     Route: 048
     Dates: start: 20080211
  2. CLAFORAN [Suspect]
     Dates: start: 20080212
  3. SINTROM [Suspect]
     Route: 048
     Dates: start: 20080206, end: 20080213
  4. SINTROM [Suspect]
     Route: 048
     Dates: start: 20080216
  5. PERFALGAN [Concomitant]
     Route: 042
  6. AERIUS                             /01398501/ [Concomitant]
  7. LASIX [Concomitant]

REACTIONS (2)
  - DRUG INTERACTION [None]
  - INTERNATIONAL NORMALISED RATIO INCREASED [None]
